FAERS Safety Report 22044883 (Version 2)
Quarter: 2023Q1

REPORT INFORMATION
  Report Type: Report from Study
  Country: CA (occurrence: CA)
  Receive Date: 20230228
  Receipt Date: 20230301
  Transmission Date: 20230418
  Serious: Yes (Hospitalization, Other)
  Sender: FDA-Public Use
  Company Number: CA-ABBVIE-4315312

PATIENT
  Sex: Female

DRUGS (1)
  1. SKYRIZI [Suspect]
     Active Substance: RISANKIZUMAB-RZAA
     Indication: Crohn^s disease
     Route: 042
     Dates: start: 20230209

REACTIONS (10)
  - Loss of consciousness [Unknown]
  - Weight decreased [Unknown]
  - Dizziness [Unknown]
  - Vomiting [Unknown]
  - Head injury [Unknown]
  - Fall [Unknown]
  - Pain [Unknown]
  - Haematochezia [Unknown]
  - Hospitalisation [Unknown]
  - Abdominal pain [Unknown]
